FAERS Safety Report 20196029 (Version 4)
Quarter: 2022Q1

REPORT INFORMATION
  Report Type: Spontaneous
  Country: FR (occurrence: FR)
  Receive Date: 20211216
  Receipt Date: 20220203
  Transmission Date: 20220424
  Serious: Yes (Hospitalization, Other)
  Sender: FDA-Public Use
  Company Number: FR-009507513-2112FRA005173

PATIENT
  Age: 75 Year
  Sex: Male
  Weight: 81 kg

DRUGS (9)
  1. KEYTRUDA [Suspect]
     Active Substance: PEMBROLIZUMAB
     Indication: Metastatic neoplasm
     Dosage: UNK
     Dates: start: 20210922
  2. KEYTRUDA [Suspect]
     Active Substance: PEMBROLIZUMAB
     Dosage: UNK
     Dates: start: 20211014
  3. KEYTRUDA [Suspect]
     Active Substance: PEMBROLIZUMAB
     Dosage: UNK
     Dates: start: 20211105
  4. GLICLAZIDE [Concomitant]
     Active Substance: GLICLAZIDE
     Dosage: 1 DF IN THE MORNING; STRENGTH: 60 (UNITS NOT PROVIDED)
     Route: 048
  5. LEVOTHYROXINE [Concomitant]
     Active Substance: LEVOTHYROXINE
     Dosage: 2 DF IN THE MORNING
     Route: 048
  6. METFORMIN [Concomitant]
     Active Substance: METFORMIN HYDROCHLORIDE
     Dosage: 1 DF MORNING, NOON AND EVENING
     Route: 048
  7. BISOPROLOL [Concomitant]
     Active Substance: BISOPROLOL
     Dosage: 1 DF IN THE MORNING
     Route: 048
  8. PERINDOPRIL [Concomitant]
     Active Substance: PERINDOPRIL
     Dosage: 1 DF IN THE MORNING
     Route: 048
  9. KARDEGIC [Concomitant]
     Active Substance: ASPIRIN DL-LYSINE
     Dosage: 1 DF AT NOON
     Route: 048

REACTIONS (2)
  - Immune-mediated enterocolitis [Unknown]
  - Tuberculosis [Unknown]

NARRATIVE: CASE EVENT DATE: 20211014
